FAERS Safety Report 26178707 (Version 1)
Quarter: 2025Q4

REPORT INFORMATION
  Report Type: Spontaneous
  Country: US (occurrence: US)
  Receive Date: 20251219
  Receipt Date: 20251219
  Transmission Date: 20260117
  Serious: Yes (Hospitalization, Other)
  Sender: SPECGX
  Company Number: US-SPECGX-T202502016

PATIENT
  Age: 40 Year
  Sex: Male

DRUGS (2)
  1. METHADONE [Suspect]
     Active Substance: METHADONE HYDROCHLORIDE
     Indication: Drug use disorder
     Dosage: 190 MILLIGRAM, QD
     Route: 065
  2. CITALOPRAM [Suspect]
     Active Substance: CITALOPRAM
     Indication: Product used for unknown indication
     Dosage: UNK
     Route: 065

REACTIONS (11)
  - Brain injury [Unknown]
  - Encephalopathy [Unknown]
  - Toxicity to various agents [Unknown]
  - Torsade de pointes [Unknown]
  - Unresponsive to stimuli [Unknown]
  - Respiratory failure [Unknown]
  - Electrocardiogram QT prolonged [Recovering/Resolving]
  - Tracheostomy [Unknown]
  - Gastrostomy [Unknown]
  - Endotracheal intubation [Unknown]
  - Serotonin syndrome [Unknown]
